FAERS Safety Report 14707841 (Version 1)
Quarter: 2018Q2

REPORT INFORMATION
  Report Type: Spontaneous
  Country: CN (occurrence: CN)
  Receive Date: 20180403
  Receipt Date: 20180403
  Transmission Date: 20180711
  Serious: Yes (Other)
  Sender: FDA-Public Use
  Company Number: CN-MERCK KGAA-2044988

PATIENT
  Age: 44 Year
  Sex: Female

DRUGS (2)
  1. EUTHYROX 50 MCG [Suspect]
     Active Substance: LEVOTHYROXINE SODIUM
     Route: 048
     Dates: start: 20180314, end: 20180317
  2. NOVOTHYROX [Suspect]
     Active Substance: LEVOTHYROXINE SODIUM
     Indication: BLOOD THYROID STIMULATING HORMONE INCREASED
     Route: 048
     Dates: start: 20180307, end: 20180314

REACTIONS (3)
  - Abortion spontaneous [None]
  - Maternal exposure during pregnancy [None]
  - Decreased embryo viability [None]
